FAERS Safety Report 10153267 (Version 1)
Quarter: 2014Q2

REPORT INFORMATION
  Report Type: Spontaneous
  Country: US (occurrence: US)
  Receive Date: 20140505
  Receipt Date: 20140505
  Transmission Date: 20141212
  Serious: Yes (Other)
  Sender: FDA-Public Use
  Company Number: US-BAXTER-2014BAX021514

PATIENT
  Age: 15 Year
  Sex: Female

DRUGS (3)
  1. CEFTRIAXONE INJECTION, USP (IN DEXTROSE) [Suspect]
     Indication: ANTIBIOTIC THERAPY
     Route: 065
  2. VANCOMYCIN INJECTION, USP [Suspect]
     Indication: ANTIBIOTIC THERAPY
     Route: 065
  3. GENTAMYCIN [Suspect]
     Indication: ANTIBIOTIC THERAPY
     Route: 065

REACTIONS (2)
  - Rash [Unknown]
  - Tubulointerstitial nephritis [Unknown]
